FAERS Safety Report 5170378-2 (Version None)
Quarter: 2006Q4

REPORT INFORMATION
  Report Type: 
  Country: None (occurrence: None)
  Receive Date: 20061204
  Receipt Date: 20061016
  Transmission Date: 20070319
  Serious: Yes (Other)
  Sender: FDA-Public Use
  Company Number: 2006129058

PATIENT
  Age: 69 Year
  Sex: Male

DRUGS (4)
  1. MEDROL [Suspect]
     Dosage: ORAL
     Route: 048
  2. AZULFIDINE EN-TABS [Suspect]
     Indication: RHEUMATOID ARTHRITIS
     Dosage: ORAL
     Route: 048
     Dates: start: 20060527
  3. METHOTREXATE [Concomitant]
  4. ETODOLAC [Concomitant]

REACTIONS (2)
  - CONJUNCTIVITIS [None]
  - PNEUMONIA [None]
